FAERS Safety Report 7405240-5 (Version None)
Quarter: 2011Q2

REPORT INFORMATION
  Report Type: 
  Country: None (occurrence: None)
  Receive Date: 20110411
  Receipt Date: 20110222
  Transmission Date: 20111010
  Serious: Yes (Hospitalization, Other)
  Sender: FDA-Public Use
  Company Number: US-BAYER-201022367NA

PATIENT
  Age: 25 Year
  Sex: Female
  Weight: 68.027 kg

DRUGS (22)
  1. CETIRIZINE HCL [Concomitant]
     Indication: MULTIPLE ALLERGIES
     Dosage: 10 MG, UNK
     Dates: start: 20010201, end: 20080801
  2. METHYLPREDNISOLONE ACETATE [Concomitant]
     Dosage: UNK
     Dates: start: 20020101
  3. ACETASOL HC [Concomitant]
  4. ZOLENE HC OTIC SOLN [Concomitant]
  5. YAZ [Suspect]
     Indication: CONTRACEPTION
     Dosage: UNK
     Dates: start: 20070803, end: 20080820
  6. DERMOTIC 0.01% OIL EAR DROPS [Concomitant]
  7. CETIRIZINE HCL [Concomitant]
     Indication: RHINITIS
  8. METHYLPREDNISOLONE ACETATE [Concomitant]
     Dosage: UNK
     Dates: start: 20050101
  9. METHYLPREDNISOLONE ACETATE [Concomitant]
     Dosage: UNK
     Dates: start: 20070101
  10. METHYLPREDNISOLONE ACETATE [Concomitant]
     Dosage: UNK
     Dates: start: 20080101
  11. TYLENOL REGULAR [Concomitant]
     Indication: PAIN
     Dosage: 500 DF, UNK
  12. CIPRODEX [CIPROFLOXACIN,DEXAMETHASONE] [Concomitant]
  13. CLINDAMYCIN [Concomitant]
     Dosage: 300 MG, UNK
  14. METHYLPREDNISOLONE ACETATE [Concomitant]
     Dosage: UNK
     Dates: start: 20060101
  15. CLINDESSE [Concomitant]
     Dosage: 2 UNK, UNK
     Route: 067
  16. CETIRIZINE HCL [Concomitant]
     Indication: RASH
  17. METHYLPREDNISOLONE ACETATE [Concomitant]
     Dosage: 4 MG, UNK
     Dates: start: 20010101
  18. YAZ [Suspect]
     Indication: PROPHYLAXIS
  19. DOXYCYCLINE HYCLATE [DOXYCYCLINE HYCLATE] [Concomitant]
     Indication: UPPER RESPIRATORY TRACT INFECTION
  20. DOXYCYCLINE HYCLATE [DOXYCYCLINE HYCLATE] [Concomitant]
     Indication: URINARY TRACT INFECTION
     Dosage: 100 MG, UNK
     Dates: start: 20080828, end: 20080912
  21. CIPROFLOXACIN [Concomitant]
     Dosage: UNK
     Dates: start: 20081115, end: 20081121
  22. MEDENT LD [GUAIFENESIN,PSEUDOEPHEDRINE] [Concomitant]

REACTIONS (3)
  - PULMONARY EMBOLISM [None]
  - DEEP VEIN THROMBOSIS [None]
  - CHOLELITHIASIS [None]
